FAERS Safety Report 6752430-0 (Version None)
Quarter: 2010Q2

REPORT INFORMATION
  Report Type: 
  Country: None (occurrence: None)
  Receive Date: 20100602
  Receipt Date: 20100518
  Transmission Date: 20101027
  Serious: No
  Sender: FDA-Public Use
  Company Number: US-B.I. PHARMACEUTICALS,INC./RIDGEFIELD-2010-BP-05073BP

PATIENT
  Sex: Female

DRUGS (5)
  1. SPIRIVA [Suspect]
     Indication: CHRONIC OBSTRUCTIVE PULMONARY DISEASE
     Dosage: 18 MCG
     Route: 055
     Dates: start: 20100101, end: 20100401
  2. SPIRIVA [Suspect]
     Indication: DYSPNOEA
  3. FOSAMAX [Concomitant]
     Indication: OSTEOPOROSIS
  4. MULTI-VITAMIN [Concomitant]
     Indication: PROPHYLAXIS
  5. DILTIAZEM [Concomitant]

REACTIONS (8)
  - BRONCHITIS [None]
  - DIZZINESS [None]
  - DRY MOUTH [None]
  - DYSPHONIA [None]
  - EYE IRRITATION [None]
  - EYE PAIN [None]
  - LARYNGITIS [None]
  - VISUAL ACUITY REDUCED [None]
